FAERS Safety Report 6547004-0 (Version None)
Quarter: 2010Q1

REPORT INFORMATION
  Report Type: 
  Country: None (occurrence: None)
  Receive Date: 20100122
  Receipt Date: 20100115
  Transmission Date: 20100710
  Serious: Yes (Hospitalization)
  Sender: FDA-Public Use
  Company Number: B0625011A

PATIENT
  Age: 55 Year
  Sex: Male

DRUGS (2)
  1. AMOXICILLIN [Suspect]
     Indication: SIGMOIDITIS
     Route: 065
  2. FLAGYL [Suspect]
     Indication: SIGMOIDITIS
     Route: 065

REACTIONS (10)
  - DERMATITIS EXFOLIATIVE [None]
  - DRUG ERUPTION [None]
  - EOSINOPHILIA [None]
  - ERYTHEMA [None]
  - HYPERTHERMIA [None]
  - LEUKOCYTOSIS [None]
  - OEDEMA [None]
  - PURPURA [None]
  - RASH PUSTULAR [None]
  - SKIN LESION [None]
